FAERS Safety Report 9286610 (Version 2)
Quarter: 2015Q1

REPORT INFORMATION
  Report Type: Spontaneous
  Country: US (occurrence: US)
  Receive Date: 20130513
  Receipt Date: 20150105
  Transmission Date: 20150721
  Serious: Yes (Death, Hospitalization)
  Sender: FDA-Public Use
  Company Number: PHHY2013US046487

PATIENT
  Sex: Female

DRUGS (3)
  1. EPIRUBICIN [Suspect]
     Active Substance: EPIRUBICIN
     Indication: BREAST CANCER STAGE III
     Route: 065
  2. CYCLOPHOSPHAMIDE. [Suspect]
     Active Substance: CYCLOPHOSPHAMIDE
     Indication: BREAST CANCER STAGE III
     Route: 065
  3. TAXOTERE [Suspect]
     Active Substance: DOCETAXEL
     Indication: BREAST CANCER STAGE III
     Route: 065

REACTIONS (14)
  - Dehydration [Unknown]
  - Jaundice [Fatal]
  - Acute hepatic failure [Fatal]
  - Retroperitoneal haemorrhage [Fatal]
  - Hepatorenal syndrome [Fatal]
  - Mental status changes [Unknown]
  - Nausea [Fatal]
  - Coma hepatic [Fatal]
  - Asthenia [Fatal]
  - Hepatitis B [Unknown]
  - Acute hepatitis B [Fatal]
  - Anaemia [Fatal]
  - Fatigue [Fatal]
  - Coagulopathy [Fatal]
